APPROVED DRUG PRODUCT: METRONIDAZOLE
Active Ingredient: METRONIDAZOLE
Strength: 0.75%
Dosage Form/Route: CREAM;TOPICAL
Application: A217128 | Product #001 | TE Code: BX
Applicant: ZYDUS LIFESCIENCES LTD
Approved: Apr 21, 2023 | RLD: No | RS: No | Type: RX